FAERS Safety Report 16782479 (Version 2)
Quarter: 2019Q3

REPORT INFORMATION
  Report Type: Report from Study
  Country: DE (occurrence: DE)
  Receive Date: 20190906
  Receipt Date: 20190920
  Transmission Date: 20191005
  Serious: Yes (Other)
  Sender: FDA-Public Use
  Company Number: DE-ASCEND THERAPEUTICS US, LLC-2074123

PATIENT
  Age: 37 Year
  Sex: Female

DRUGS (9)
  1. UTROGEST (PROGESTERONE)?HORMONE SUPPLEMENTARY TREATMENT- TOGETHER WITH [Suspect]
     Active Substance: PROGESTERONE
     Dates: end: 20190812
  2. FOLINIC ACID (FOLINIC ACID?DRUG USE FOR UNKNOWN INDICATION [Concomitant]
  3. GYNOKADIN (ESTRADIOL HEMIHYDRATE) (GEL)?HORMONE SUPPLEMENTARY TREATMEN [Suspect]
     Active Substance: ESTRADIOL HEMIHYDRATE
  4. OCRELIZUMAB (OCRELIZUMAB)?RELAPSING MULTIPLE SCLEROSIS?SECONDARY PROGR [Suspect]
     Active Substance: OCRELIZUMAB
     Route: 042
     Dates: start: 20190701
  5. TOLTERODIN (TOLTERODINE L-TARTATE)?DRUG USE FOR UNKNOWN INDICATION [Concomitant]
  6. FLUVOXAMINE?DRUG USE FOR UNKNOWN INDICATION [Concomitant]
  7. ESTROGEL [Suspect]
     Active Substance: ESTRADIOL
     Indication: OSTEOPOROSIS
     Dates: end: 20190812
  8. CALCIUM ?DRUG USE FOR UNKNOWN INDICATION?CHEWABLE TABLETS TOGETHER WIT [Concomitant]
  9. FERRUM (FERROUS GLUCONATE) ?DRUG USE FOR UNKNOWN INDICATION [Concomitant]

REACTIONS (24)
  - Migraine [Recovered/Resolved]
  - Multiple sclerosis relapse [Unknown]
  - Panic attack [Not Recovered/Not Resolved]
  - Skin burning sensation [Recovering/Resolving]
  - Myalgia [Not Recovered/Not Resolved]
  - Depression [Recovered/Resolved]
  - Fatigue [Not Recovered/Not Resolved]
  - Headache [Not Recovered/Not Resolved]
  - Visual impairment [Recovered/Resolved]
  - Throat irritation [Recovered/Resolved]
  - Paraesthesia [Recovering/Resolving]
  - Nerve compression [Unknown]
  - Nausea [Not Recovered/Not Resolved]
  - White blood cell count decreased [Unknown]
  - Chest pain [Recovered/Resolved]
  - Coordination abnormal [Not Recovered/Not Resolved]
  - Anxiety [Not Recovered/Not Resolved]
  - Fatigue [Recovering/Resolving]
  - Salivary hypersecretion [Recovered/Resolved]
  - Arthralgia [Recovering/Resolving]
  - Cardiovascular insufficiency [Not Recovered/Not Resolved]
  - Blood pressure decreased [Recovered/Resolved]
  - Nasopharyngitis [Recovered/Resolved]
  - Muscular weakness [Not Recovered/Not Resolved]

NARRATIVE: CASE EVENT DATE: 20190701
